FAERS Safety Report 7833485-9 (Version None)
Quarter: 2011Q4

REPORT INFORMATION
  Report Type: 
  Country: None (occurrence: None)
  Receive Date: 20111024
  Receipt Date: 20111019
  Transmission Date: 20120403
  Serious: Yes (Death, Life-Threatening, Hospitalization, Other)
  Sender: FDA-Public Use
  Company Number: US-ASTELLAS-2011US003256

PATIENT
  Sex: Male
  Weight: 71 kg

DRUGS (3)
  1. SIROLIMUS [Suspect]
     Indication: GRAFT VERSUS HOST DISEASE
     Dosage: UNK
     Route: 065
     Dates: end: 20110703
  2. MYCOPHENOLATE MOFETIL [Suspect]
     Indication: GRAFT VERSUS HOST DISEASE
     Dosage: 500 MG, BID
     Route: 042
     Dates: start: 20110622
  3. AMBISOME [Suspect]
     Indication: ZYGOMYCOSIS
     Dosage: 5 MG/KG, 3XWEEKLY
     Route: 042
     Dates: end: 20110615

REACTIONS (26)
  - BACTERAEMIA [None]
  - GASTROINTESTINAL HAEMORRHAGE [None]
  - GRAFT VERSUS HOST DISEASE [None]
  - CAECITIS [None]
  - SKIN INFECTION [None]
  - DEVICE RELATED INFECTION [None]
  - SEPTIC SHOCK [None]
  - SUPRAVENTRICULAR TACHYCARDIA [None]
  - URINARY TRACT INFECTION ENTEROCOCCAL [None]
  - CARDIAC ARREST [None]
  - RENAL IMPAIRMENT [None]
  - HYPERBILIRUBINAEMIA [None]
  - PYREXIA [None]
  - RENAL FAILURE ACUTE [None]
  - HAEMOPTYSIS [None]
  - CYTOMEGALOVIRUS INFECTION [None]
  - SHOCK [None]
  - ESCHERICHIA INFECTION [None]
  - HYPOTENSION [None]
  - BLOOD CREATININE INCREASED [None]
  - LEUKOPENIA [None]
  - ATRIOVENTRICULAR BLOCK COMPLETE [None]
  - BLOOD IMMUNOGLOBULIN G DECREASED [None]
  - CYTOMEGALOVIRUS VIRAEMIA [None]
  - RASH [None]
  - NEUTROPENIA [None]
